FAERS Safety Report 20075025 (Version 1)
Quarter: 2021Q4

REPORT INFORMATION
  Report Type: Spontaneous
  Country: US (occurrence: US)
  Receive Date: 20211116
  Receipt Date: 20211116
  Transmission Date: 20220303
  Serious: No
  Sender: FDA-Public Use
  Company Number: US-GSKCCFUS-Case-01214087_AE-71116

PATIENT
  Sex: Female

DRUGS (2)
  1. FLOVENT HFA [Suspect]
     Active Substance: FLUTICASONE PROPIONATE
     Indication: Product used for unknown indication
     Dosage: UNK
     Route: 055
     Dates: start: 202107
  2. LORATADINE [Concomitant]
     Active Substance: LORATADINE
     Indication: Pruritus
     Dosage: UNK

REACTIONS (4)
  - Pruritus [Not Recovered/Not Resolved]
  - Eye pruritus [Not Recovered/Not Resolved]
  - Nasal pruritus [Not Recovered/Not Resolved]
  - Ear pruritus [Not Recovered/Not Resolved]

NARRATIVE: CASE EVENT DATE: 20210901
